FAERS Safety Report 13122599 (Version 1)
Quarter: 2017Q1

REPORT INFORMATION
  Report Type: Spontaneous
  Country: US (occurrence: US)
  Receive Date: 20170117
  Receipt Date: 20170117
  Transmission Date: 20170428
  Serious: No
  Sender: FDA-Public Use
  Company Number: US-ALLERGAN-1652118US

PATIENT
  Sex: Male

DRUGS (1)
  1. ACZONE [Suspect]
     Active Substance: DAPSONE
     Indication: LINEAR IGA DISEASE

REACTIONS (4)
  - Application site dryness [Unknown]
  - Off label use [Unknown]
  - Application site erythema [Unknown]
  - Application site pain [Unknown]
